FAERS Safety Report 7487018 (Version 12)
Quarter: 2013Q2

REPORT INFORMATION
  Report Type: Report from Study
  Country: CA (occurrence: CA)
  Receive Date: 20100719
  Receipt Date: 20130517
  Transmission Date: 20140414
  Serious: Yes (Hospitalization, Other)
  Sender: FDA-Public Use
  Company Number: PHHY2010CA08702

PATIENT
  Sex: Male

DRUGS (1)
  1. SANDOSTATIN LAR [Suspect]
     Indication: ENDOCRINE NEOPLASM
     Dosage: 20 MG, EVERY 4 WEEKS
     Route: 030
     Dates: start: 20100210

REACTIONS (15)
  - Nephrolithiasis [Not Recovered/Not Resolved]
  - Haematuria [Not Recovered/Not Resolved]
  - Abdominal pain [Not Recovered/Not Resolved]
  - Renal colic [Unknown]
  - Thyroid mass [Unknown]
  - Memory impairment [Unknown]
  - Cholelithiasis [Unknown]
  - Depression [Unknown]
  - Aggression [Unknown]
  - Gastrooesophageal reflux disease [Unknown]
  - Anxiety [Unknown]
  - Influenza [Unknown]
  - Immunodeficiency [Unknown]
  - Viral infection [Unknown]
  - Nausea [Unknown]
